FAERS Safety Report 8159437-X (Version None)
Quarter: 2012Q1

REPORT INFORMATION
  Report Type: 
  Country: None (occurrence: None)
  Receive Date: 20120223
  Receipt Date: 20120209
  Transmission Date: 20120608
  Serious: Yes (Hospitalization)
  Sender: FDA-Public Use
  Company Number: JP-GE HEALTHCARE MEDICAL DIAGNOSTICS-OMPQ-NO-1202S-0172

PATIENT
  Sex: Female

DRUGS (9)
  1. NICORANDIS [Concomitant]
  2. LANSOPRAZOLE [Concomitant]
  3. COROHERSER [Concomitant]
  4. BENIDIPINE [Concomitant]
  5. TICLOPIDINE HCL [Concomitant]
  6. OMNIPAQUE 140 [Suspect]
     Indication: PRODUCT USED FOR UNKNOWN INDICATION
     Route: 050
     Dates: start: 20120202, end: 20120202
  7. PRAVASTATIN [Concomitant]
  8. ASPIRIN [Concomitant]
  9. ALENDRONATE SODIUM [Concomitant]

REACTIONS (2)
  - HYPOAESTHESIA [None]
  - ASTHMA [None]
